FAERS Safety Report 14062469 (Version 1)
Quarter: 2017Q4

REPORT INFORMATION
  Report Type: Spontaneous
  Country: US (occurrence: US)
  Receive Date: 20171009
  Receipt Date: 20171009
  Transmission Date: 20180321
  Serious: No
  Sender: FDA-Public Use
  Company Number: US-PFIZER INC-2017432461

PATIENT
  Age: 44 Year
  Weight: 86 kg

DRUGS (1)
  1. DOXYCYCLINE HYCLATE. [Suspect]
     Active Substance: DOXYCYCLINE HYCLATE
     Indication: WOUND INFECTION
     Dosage: TWO 100MG
     Dates: start: 20170727, end: 20170728

REACTIONS (4)
  - Anxiety [Unknown]
  - Dizziness [Unknown]
  - Heart rate increased [Unknown]
  - Nausea [Unknown]

NARRATIVE: CASE EVENT DATE: 20170728
